FAERS Safety Report 9670982 (Version 1)
Quarter: 2013Q4

REPORT INFORMATION
  Report Type: Spontaneous
  Country: GB (occurrence: GB)
  Receive Date: 20131106
  Receipt Date: 20131106
  Transmission Date: 20140711
  Serious: Yes (Other)
  Sender: FDA-Public Use
  Company Number: GB-MYLANLABS-2013S1023983

PATIENT
  Age: 73 Year
  Sex: Female
  Weight: 76.2 kg

DRUGS (1)
  1. TAMOXIFEN [Suspect]
     Indication: BREAST CANCER FEMALE
     Route: 048

REACTIONS (4)
  - Condition aggravated [Unknown]
  - Migraine with aura [Recovered/Resolved]
  - Amnesia [Not Recovered/Not Resolved]
  - Vulvovaginal pruritus [Not Recovered/Not Resolved]
